FAERS Safety Report 21118800 (Version 1)
Quarter: 2022Q3

REPORT INFORMATION
  Report Type: Spontaneous
  Country: US (occurrence: None)
  Receive Date: 20220721
  Receipt Date: 20220721
  Transmission Date: 20221026
  Serious: No
  Sender: FDA-Public Use
  Company Number: None

PATIENT
  Age: 29 Year
  Sex: Female
  Weight: 81.9 kg

DRUGS (17)
  1. PAXLOVID [Suspect]
     Active Substance: NIRMATRELVIR\RITONAVIR
     Indication: SARS-CoV-2 test positive
     Dosage: FREQUENCY : TWICE A DAY;?
     Route: 048
     Dates: start: 20220714, end: 20220719
  2. LEVOTHYROXINE [Concomitant]
     Active Substance: LEVOTHYROXINE
  3. CYCLOBENZAPRINE [Concomitant]
     Active Substance: CYCLOBENZAPRINE
  4. SPIRONOLACTONE [Concomitant]
     Active Substance: SPIRONOLACTONE
  5. SAXENDA [Concomitant]
     Active Substance: LIRAGLUTIDE
  6. Nortryptaline [Concomitant]
  7. NURTEC ODT [Concomitant]
     Active Substance: RIMEGEPANT SULFATE
  8. VENLAFAXINE [Concomitant]
     Active Substance: VENLAFAXINE HYDROCHLORIDE
  9. LAMOTRIGINE [Concomitant]
     Active Substance: LAMOTRIGINE
  10. BUPROPION [Concomitant]
     Active Substance: BUPROPION
  11. ZOFRAN [Concomitant]
     Active Substance: ONDANSETRON HYDROCHLORIDE
  12. OMEPRAZOLE [Concomitant]
     Active Substance: OMEPRAZOLE
  13. VITAMINS [Concomitant]
     Active Substance: VITAMINS
  14. MAGNESIUM [Concomitant]
     Active Substance: MAGNESIUM
  15. COENZYME Q10 [Concomitant]
     Active Substance: DIETARY SUPPLEMENT\UBIDECARENONE
  16. FISH OIL [Concomitant]
     Active Substance: FISH OIL
  17. PROBIOTICS NOS [Concomitant]
     Active Substance: PROBIOTICS NOS

REACTIONS (10)
  - Gastrointestinal pain [None]
  - Nausea [None]
  - Constipation [None]
  - Faeces soft [None]
  - Dizziness [None]
  - Fatigue [None]
  - Somnolence [None]
  - Rebound effect [None]
  - Loss of personal independence in daily activities [None]
  - Abdominal discomfort [None]

NARRATIVE: CASE EVENT DATE: 20220714
